FAERS Safety Report 14618490 (Version 1)
Quarter: 2018Q1

REPORT INFORMATION
  Report Type: Spontaneous
  Country: CA (occurrence: CA)
  Receive Date: 20180309
  Receipt Date: 20180309
  Transmission Date: 20180509
  Serious: Yes (Other)
  Sender: FDA-Public Use
  Company Number: CA-PFIZER INC-2018092796

PATIENT
  Sex: Female

DRUGS (3)
  1. GOLD [Concomitant]
     Active Substance: GOLD
     Dosage: UNK
     Dates: start: 200003, end: 200004
  2. HYDROXYCHLOROQUINE [Concomitant]
     Active Substance: HYDROXYCHLOROQUINE
     Dosage: UNK
     Dates: start: 1994, end: 1996
  3. METHOTREXATE SODIUM. [Suspect]
     Active Substance: METHOTREXATE SODIUM
     Indication: RHEUMATOID ARTHRITIS
     Dosage: UNK
     Dates: start: 199411, end: 200804

REACTIONS (2)
  - Nausea [Unknown]
  - Drug intolerance [Unknown]
